FAERS Safety Report 5736064-2 (Version None)
Quarter: 2008Q2

REPORT INFORMATION
  Report Type: 
  Country: None (occurrence: None)
  Receive Date: 20080513
  Receipt Date: 20080502
  Transmission Date: 20081010
  Serious: Yes (Other)
  Sender: FDA-Public Use
  Company Number: BR-ROCHE-562670

PATIENT
  Age: 19 Year
  Sex: Female
  Weight: 50 kg

DRUGS (2)
  1. ROACUTAN [Suspect]
     Indication: ACNE
     Route: 048
     Dates: start: 20080418, end: 20080418
  2. OMEPRAZOLE [Concomitant]
     Indication: GASTRITIS

REACTIONS (2)
  - FACIAL PALSY [None]
  - STOMATITIS [None]
